FAERS Safety Report 8416145-5 (Version None)
Quarter: 2012Q2

REPORT INFORMATION
  Report Type: 
  Country: None (occurrence: None)
  Receive Date: 20120606
  Receipt Date: 20120531
  Transmission Date: 20120825
  Serious: Yes (Death)
  Sender: FDA-Public Use
  Company Number: PE-PFIZER INC-2012132392

PATIENT
  Age: 66 Year
  Sex: Female

DRUGS (1)
  1. ECALTA [Suspect]
     Dosage: UNK

REACTIONS (1)
  - DEATH [None]
